FAERS Safety Report 4393429-1 (Version None)
Quarter: 2004Q3

REPORT INFORMATION
  Report Type: 
  Country: None (occurrence: None)
  Receive Date: 20040701
  Receipt Date: 20040622
  Transmission Date: 20050211
  Serious: No
  Sender: FDA-Public Use
  Company Number: FABR-10642

PATIENT
  Age: 43 Year
  Sex: Female
  Weight: 77.5 kg

DRUGS (2)
  1. FABRAZYME [Suspect]
     Indication: FABRY'S DISEASE
     Dosage: 70 MG Q2WKS IV
     Route: 042
     Dates: start: 20030120
  2. ATENOLOL [Concomitant]

REACTIONS (2)
  - DILATATION VENTRICULAR [None]
  - DRUG INEFFECTIVE [None]
